FAERS Safety Report 18360842 (Version 5)
Quarter: 2021Q3

REPORT INFORMATION
  Report Type: Spontaneous
  Country: US (occurrence: US)
  Receive Date: 20201008
  Receipt Date: 20210720
  Transmission Date: 20211014
  Serious: Yes (Other)
  Sender: FDA-Public Use
  Company Number: US-SA-2020SA276117

PATIENT
  Age: 43 Year
  Sex: Female

DRUGS (28)
  1. DUPIXENT [Suspect]
     Active Substance: DUPILUMAB
     Indication: ASTHMA
     Dosage: 1 DF, QOW
     Route: 058
     Dates: start: 2020
  2. ALBUTEROL SULFATE. [Concomitant]
     Active Substance: ALBUTEROL SULFATE
  3. AYRA [Concomitant]
  4. TIZANIDINE. [Concomitant]
     Active Substance: TIZANIDINE
     Dosage: 4MG
     Route: 048
  5. ALBUTEROL SULFATE. [Concomitant]
     Active Substance: ALBUTEROL SULFATE
  6. ASPIRIN. [Concomitant]
     Active Substance: ASPIRIN
     Dosage: 81MG
     Route: 048
  7. OLANZAPINE. [Concomitant]
     Active Substance: OLANZAPINE
     Dosage: 5 MG
     Route: 048
  8. FLONASE ALLERGY RELIEF [Concomitant]
     Active Substance: FLUTICASONE PROPIONATE
     Dosage: 50 MCG/ACT
  9. VENTOLIN HFA [Concomitant]
     Active Substance: ALBUTEROL SULFATE
     Dosage: 108 (90 BASE) MCG/ACT
     Route: 055
  10. GABAPENTIN. [Concomitant]
     Active Substance: GABAPENTIN
     Dosage: 800 MG
     Route: 048
  11. LEXAPRO [Concomitant]
     Active Substance: ESCITALOPRAM OXALATE
     Dosage: 10 MG
  12. AIMOVIG [Concomitant]
     Active Substance: ERENUMAB-AOOE
     Route: 058
  13. CYCLOBENZAPRINE. [Concomitant]
     Active Substance: CYCLOBENZAPRINE
     Dosage: 10 MG
     Route: 048
  14. MELOXICAM. [Concomitant]
     Active Substance: MELOXICAM
     Dosage: 15 MG
     Route: 048
  15. SYMBICORT [Concomitant]
     Active Substance: BUDESONIDE\FORMOTEROL FUMARATE DIHYDRATE
  16. NURTEC ODT [Concomitant]
     Active Substance: RIMEGEPANT SULFATE
     Indication: MIGRAINE
     Dosage: UNK UNK, PRN
  17. CETIRIZINE HCL [Concomitant]
     Active Substance: CETIRIZINE HYDROCHLORIDE
     Dosage: 10 MG
     Route: 048
  18. FOLIC ACID. [Concomitant]
     Active Substance: FOLIC ACID
     Route: 048
  19. PRAZOSIN HCL [Concomitant]
     Active Substance: PRAZOSIN HYDROCHLORIDE
     Dosage: 2 MG
     Route: 048
  20. ALBUTEROL SULFATE HFA [Concomitant]
     Active Substance: ALBUTEROL SULFATE
     Dosage: 2.5 MG/3ML
  21. RIZATRIPTAN BENZOATE. [Concomitant]
     Active Substance: RIZATRIPTAN BENZOATE
     Dosage: 10 MG
     Route: 048
  22. MONTELUKAST SODIUM. [Concomitant]
     Active Substance: MONTELUKAST SODIUM
     Dosage: 10 MG
     Route: 048
  23. OMEPRAZOLE. [Concomitant]
     Active Substance: OMEPRAZOLE
     Dosage: 40 MG
     Route: 048
  24. DUPIXENT [Suspect]
     Active Substance: DUPILUMAB
     Dosage: 300 MG
     Route: 058
     Dates: start: 202103
  25. ALBUTEROL SULFATE. [Concomitant]
     Active Substance: ALBUTEROL SULFATE
     Route: 055
  26. BUSPIRONE HCL [Concomitant]
     Active Substance: BUSPIRONE HYDROCHLORIDE
     Dosage: 10 MG
     Route: 048
  27. ACETAMINOPHEN;HYDROCODONE [Concomitant]
     Active Substance: ACETAMINOPHEN\HYDROCODONE
     Dosage: 325 MG
     Route: 048
  28. BACITRACIN;NEOMYCIN SULFATE;POLYMYXIN B [Concomitant]

REACTIONS (6)
  - Rash [Recovered/Resolved]
  - Musculoskeletal chest pain [Unknown]
  - Product dose omission issue [Unknown]
  - Epistaxis [Unknown]
  - Chest discomfort [Unknown]
  - Breast cancer female [Unknown]

NARRATIVE: CASE EVENT DATE: 202008
